FAERS Safety Report 7812472-0 (Version None)
Quarter: 2011Q4

REPORT INFORMATION
  Report Type: 
  Country: None (occurrence: None)
  Receive Date: 20111013
  Receipt Date: 20111004
  Transmission Date: 20120403
  Serious: Yes (Other)
  Sender: FDA-Public Use
  Company Number: US-MYLANLABS-2011S1010310

PATIENT
  Sex: Female

DRUGS (1)
  1. FENTANYL-100 [Suspect]
     Indication: PAIN

REACTIONS (3)
  - CARDIO-RESPIRATORY ARREST [None]
  - TOXICITY TO VARIOUS AGENTS [None]
  - UNRESPONSIVE TO STIMULI [None]
